FAERS Safety Report 17241544 (Version 2)
Quarter: 2020Q1

REPORT INFORMATION
  Report Type: Report from Study
  Country: NL (occurrence: NL)
  Receive Date: 20200107
  Receipt Date: 20200207
  Transmission Date: 20200409
  Serious: Yes (Hospitalization)
  Sender: FDA-Public Use
  Company Number: NL-ROCHE-2511555

PATIENT
  Age: 39 Year
  Sex: Female

DRUGS (6)
  1. KEPPRA [Concomitant]
     Active Substance: LEVETIRACETAM
     Dosage: 2X500 MG
     Route: 065
     Dates: start: 20191217
  2. CYCLOPHOSPHAMIDE. [Suspect]
     Active Substance: CYCLOPHOSPHAMIDE
     Indication: TRIPLE NEGATIVE BREAST CANCER
     Route: 042
  3. ATEZOLIZUMAB. [Suspect]
     Active Substance: ATEZOLIZUMAB
     Indication: TRIPLE NEGATIVE BREAST CANCER
     Dosage: FREQUENCY: D1,15?MOST RECENT DOSE OF ATEZOLIZUMAB PRIOR TO EVENT ONSET: 12/DEC/2019
     Route: 042
     Dates: start: 20190905
  4. CARBOPLATIN. [Suspect]
     Active Substance: CARBOPLATIN
     Indication: TRIPLE NEGATIVE BREAST CANCER
     Route: 042
  5. PACLITAXEL. [Suspect]
     Active Substance: PACLITAXEL
     Indication: TRIPLE NEGATIVE BREAST CANCER
     Dosage: D1, 8, 15,?MOST RECENT DOSE OF PACLITAXEL PRIOR TO EVENT ONSET: 12/DEC/2019
     Route: 042
     Dates: start: 20190905
  6. DEXAMETHASONE. [Concomitant]
     Active Substance: DEXAMETHASONE
     Route: 065
     Dates: start: 20191218

REACTIONS (1)
  - Nervous system disorder [Recovered/Resolved]

NARRATIVE: CASE EVENT DATE: 20191217
